FAERS Safety Report 13618065 (Version 1)
Quarter: 2017Q2

REPORT INFORMATION
  Report Type: Spontaneous
  Country: JP (occurrence: JP)
  Receive Date: 20170606
  Receipt Date: 20170606
  Transmission Date: 20170830
  Serious: Yes (Death)
  Sender: FDA-Public Use
  Company Number: JP-TEVA-2017-JP-001646J

PATIENT
  Age: 68 Year
  Sex: Male

DRUGS (24)
  1. THEOPHYLLINE [Concomitant]
     Active Substance: THEOPHYLLINE ANHYDROUS
     Route: 065
  2. TRIAZOLAM. [Concomitant]
     Active Substance: TRIAZOLAM
     Route: 065
  3. NEUROTROPIN [Concomitant]
     Active Substance: NEUROTROPIN
     Route: 065
  4. FUROSEMIDE. [Concomitant]
     Active Substance: FUROSEMIDE
     Route: 065
  5. GLUCOSE [Concomitant]
     Active Substance: DEXTROSE
     Route: 065
  6. TOHMOL [Concomitant]
     Route: 065
  7. SPIRONOLACTONE TABLET 25MG ^TEVA^ [Suspect]
     Active Substance: SPIRONOLACTONE
     Indication: PRODUCT USED FOR UNKNOWN INDICATION
     Route: 048
     Dates: start: 20170417
  8. BROTIZOLAM [Concomitant]
     Active Substance: BROTIZOLAM
     Route: 065
  9. 5% GLUCOSE [Concomitant]
     Active Substance: DEXTROSE
     Route: 065
  10. KYOMINOTIN [Concomitant]
     Route: 065
  11. NIKORANMART [Concomitant]
     Active Substance: NICORANDIL
     Route: 065
  12. SEKINARIN [Concomitant]
     Active Substance: TULOBUTEROL
     Route: 065
  13. ATP [Concomitant]
     Active Substance: ADENOSINE TRIPHOSPHATE DISODIUM
     Route: 065
  14. DIGOXIN. [Concomitant]
     Active Substance: DIGOXIN
     Route: 065
  15. LORATADINE. [Concomitant]
     Active Substance: LORATADINE
     Route: 065
  16. REBAMIPIDE [Concomitant]
     Active Substance: REBAMIPIDE
     Route: 065
  17. QUETIAPINE. [Concomitant]
     Active Substance: QUETIAPINE
     Route: 065
  18. CANDESARTAN. [Concomitant]
     Active Substance: CANDESARTAN
     Route: 065
  19. 50% GLUCOSE [Concomitant]
     Route: 065
  20. AMBROXOL HYDROCHLORIDE OD [Concomitant]
     Route: 065
  21. LANSOPRAZOLE. [Concomitant]
     Active Substance: LANSOPRAZOLE
     Route: 065
  22. MONTELUKAST SODIUM. [Concomitant]
     Active Substance: MONTELUKAST SODIUM
     Route: 065
  23. ELNEOPA NO.2 [Concomitant]
     Active Substance: AMINO ACIDS\CARBOHYDRATES\ELECTROLYTES NOS\VITAMINS
     Route: 065
  24. FUROSEMIDE TABLET 40MG ^TEVA^ [Suspect]
     Active Substance: FUROSEMIDE
     Indication: PRODUCT USED FOR UNKNOWN INDICATION
     Route: 065
     Dates: start: 20170417

REACTIONS (2)
  - Pneumonia [Fatal]
  - Pleural effusion [Fatal]

NARRATIVE: CASE EVENT DATE: 20170506
